FAERS Safety Report 6371940-1 (Version None)
Quarter: 2009Q3

REPORT INFORMATION
  Report Type: 
  Country: None (occurrence: None)
  Receive Date: 20090923
  Receipt Date: 20090911
  Transmission Date: 20100115
  Serious: Yes (Hospitalization)
  Sender: FDA-Public Use
  Company Number: US-ELI_LILLY_AND_COMPANY-US200909002706

PATIENT
  Age: 80 Year
  Sex: Male

DRUGS (2)
  1. CYMBALTA [Suspect]
     Indication: DEPRESSION
     Dosage: 30 MG, UNK
  2. SEROQUEL [Concomitant]
     Dosage: 50 MG, UNK

REACTIONS (2)
  - DELUSIONAL DISORDER, UNSPECIFIED TYPE [None]
  - URINE AMPHETAMINE POSITIVE [None]
